FAERS Safety Report 25318495 (Version 1)
Quarter: 2025Q2

REPORT INFORMATION
  Report Type: Spontaneous
  Country: US (occurrence: None)
  Receive Date: 20250514
  Receipt Date: 20250514
  Transmission Date: 20250717
  Serious: Yes (Other)
  Sender: FDA-CTU
  Company Number: None

PATIENT
  Age: 48 Year
  Sex: Female

DRUGS (2)
  1. BIMZELX [Suspect]
     Active Substance: BIMEKIZUMAB-BKZX
     Indication: Psoriasis
     Route: 058
     Dates: start: 20250226
  2. Sumatriptan 50 MG Tab [Concomitant]

REACTIONS (3)
  - Crying [None]
  - Stress [None]
  - Joint stiffness [None]

NARRATIVE: CASE EVENT DATE: 20250415
